FAERS Safety Report 10598260 (Version 1)
Quarter: 2014Q4

REPORT INFORMATION
  Report Type: Spontaneous
  Country: GB (occurrence: None)
  Receive Date: 20141119
  Receipt Date: 20141119
  Transmission Date: 20150529
  Serious: Yes (Hospitalization, Other)
  Sender: FDA-Public Use
  Company Number: CL-592-2014

PATIENT
  Age: 23 Year
  Sex: Female

DRUGS (4)
  1. LABETOLOL [Suspect]
     Active Substance: LABETALOL HYDROCHLORIDE
     Indication: PRE-ECLAMPSIA
     Dosage: 20-160MH/H INFUSION
  2. IRON FUMARATE THREE [Concomitant]
  3. FOLIC ACID. [Concomitant]
     Active Substance: FOLIC ACID
  4. LABETOLOL TABLETS [Suspect]
     Active Substance: LABETALOL HYDROCHLORIDE
     Indication: HYPERTENSION
     Route: 048

REACTIONS (4)
  - Caesarean section [None]
  - Foetal growth restriction [None]
  - Exposure during pregnancy [None]
  - Hyperkalaemia [None]
